FAERS Safety Report 9279081 (Version 1)
Quarter: 2013Q2

REPORT INFORMATION
  Report Type: Spontaneous
  Country: SK (occurrence: SK)
  Receive Date: 20130508
  Receipt Date: 20130514
  Transmission Date: 20140414
  Serious: Yes (Hospitalization)
  Sender: FDA-Public Use
  Company Number: SK-009507513-1305SVK000012

PATIENT
  Age: 18 Year
  Sex: Male
  Weight: 78 kg

DRUGS (4)
  1. SINGULAIR 10 MG [Suspect]
     Indication: RHINITIS ALLERGIC
     Dosage: 10 MG, QD
     Route: 048
     Dates: start: 20130310, end: 20130310
  2. ASMANEX TWISTHALER [Concomitant]
     Dosage: UNK, QD
  3. NASONEX [Concomitant]
  4. AERIUS [Concomitant]
     Dosage: UNK, QD

REACTIONS (5)
  - Bronchopneumonia [Unknown]
  - Abnormal behaviour [Recovered/Resolved]
  - Mood swings [Recovered/Resolved]
  - Cough [Unknown]
  - Hallucination [Recovered/Resolved]
